FAERS Safety Report 9000161 (Version 1)
Quarter: 2013Q1

REPORT INFORMATION
  Report Type: Report from Study
  Country: US (occurrence: US)
  Receive Date: 20130102
  Receipt Date: 20130102
  Transmission Date: 20140127
  Serious: Yes (Hospitalization)
  Sender: FDA-Public Use
  Company Number: US-JNJFOC-20121212069

PATIENT
  Sex: Female
  Weight: 56.7 kg

DRUGS (7)
  1. REMICADE [Suspect]
     Indication: INFLAMMATORY BOWEL DISEASE
     Route: 042
     Dates: start: 20041212
  2. HUMIRA [Concomitant]
     Dates: start: 20090316
  3. VITAMIN D [Concomitant]
  4. YAZ [Concomitant]
     Indication: CONTRACEPTION
  5. ASCORBIC ACID [Concomitant]
  6. OMEGA 3 FATTY ACIDS [Concomitant]
  7. CALCIUM AND VITAMIN D [Concomitant]

REACTIONS (1)
  - Food poisoning [Recovered/Resolved]
